FAERS Safety Report 22347677 (Version 1)
Quarter: 2023Q2

REPORT INFORMATION
  Report Type: Spontaneous
  Country: US (occurrence: US)
  Receive Date: 20230522
  Receipt Date: 20230522
  Transmission Date: 20230722
  Serious: No
  Sender: FDA-Public Use
  Company Number: US-ChurchDwight-2023-CDW-00859

PATIENT
  Sex: Male

DRUGS (1)
  1. HOMEOPATHICS [Suspect]
     Active Substance: ARNICA MONTANA\CAUSTICUM\COMFREY ROOT\HOMEOPATHICS\LEDUM PALUSTRE TWIG\PSEUDOGNAPHALIUM OBTUSIFOLIUM
     Indication: Product used for unknown indication
     Dosage: FOR 3 DAYS, USUALLY ONLY ONCE.
     Route: 045

REACTIONS (3)
  - Anosmia [Recovering/Resolving]
  - Ageusia [Recovering/Resolving]
  - Appetite disorder [Recovering/Resolving]
